FAERS Safety Report 8486793-5 (Version None)
Quarter: 2012Q3

REPORT INFORMATION
  Report Type: 
  Country: None (occurrence: None)
  Receive Date: 20120704
  Receipt Date: 20120625
  Transmission Date: 20120928
  Serious: No
  Sender: FDA-Public Use
  Company Number: US-BIOGENIDEC-2012BI022505

PATIENT
  Age: 60 Year
  Sex: Female

DRUGS (3)
  1. AVONEX [Suspect]
     Indication: MULTIPLE SCLEROSIS
     Route: 030
     Dates: start: 20120611
  2. TRAMADOL HCL [Concomitant]
     Indication: PAIN IN EXTREMITY
  3. OMEPRAZOLE [Concomitant]
     Indication: ABDOMINAL DISCOMFORT

REACTIONS (11)
  - CHROMATURIA [None]
  - HEADACHE [None]
  - FEELING DRUNK [None]
  - APHAGIA [None]
  - INJECTION SITE HAEMATOMA [None]
  - NAUSEA [None]
  - DYSARTHRIA [None]
  - DIZZINESS [None]
  - VULVAL ABSCESS [None]
  - OCULAR ICTERUS [None]
  - HOT FLUSH [None]
